FAERS Safety Report 6152377-7 (Version None)
Quarter: 2009Q2

REPORT INFORMATION
  Report Type: 
  Country: None (occurrence: None)
  Receive Date: 20090413
  Receipt Date: 20090406
  Transmission Date: 20091009
  Serious: Yes (Hospitalization)
  Sender: FDA-Public Use
  Company Number: US-JNJFOC-20090402568

PATIENT
  Age: 47 Year
  Sex: Female
  Weight: 55.34 kg

DRUGS (8)
  1. LEVAQUIN [Suspect]
     Indication: SINUSITIS
     Route: 065
  2. CIPROFLOXACIN [Suspect]
     Indication: SINUSITIS
     Route: 065
  3. ATENOLOL [Concomitant]
     Indication: HYPERTENSION
     Route: 065
  4. SINGULAIR [Concomitant]
     Indication: MULTIPLE ALLERGIES
     Route: 065
  5. IRON SUPPLEMENT [Concomitant]
     Indication: ANAEMIA
     Route: 065
  6. LOVENOX [Concomitant]
     Indication: THROMBOSIS
     Route: 065
  7. EFFEXOR [Concomitant]
     Indication: DEPRESSION
     Route: 065
  8. ACIDOPHILUS [Concomitant]
     Indication: PROPHYLAXIS
     Dosage: 500 MILLION LIVE CELLS
     Route: 065

REACTIONS (2)
  - CLOSTRIDIAL INFECTION [None]
  - DEHYDRATION [None]
